FAERS Safety Report 4322178-0 (Version None)
Quarter: 2004Q1

REPORT INFORMATION
  Report Type: 
  Country: None (occurrence: None)
  Receive Date: 20040319
  Receipt Date: 20040309
  Transmission Date: 20041129
  Serious: Yes (Death)
  Sender: FDA-Public Use
  Company Number: 163-20785-03120184

PATIENT
  Age: 53 Year
  Sex: Male

DRUGS (2)
  1. THALOMID [Suspect]
     Indication: ANAPLASTIC ASTROCYTOMA
     Dosage: 100 MG, DAILY, ORAL;  50 MG, DAILY, ORAL
     Route: 048
     Dates: start: 20030514, end: 20030601
  2. THALOMID [Suspect]
     Indication: ANAPLASTIC ASTROCYTOMA
     Dosage: 100 MG, DAILY, ORAL;  50 MG, DAILY, ORAL
     Route: 048
     Dates: start: 20030601, end: 20030630

REACTIONS (2)
  - ANAPLASTIC ASTROCYTOMA [None]
  - MALIGNANT NEOPLASM PROGRESSION [None]
